FAERS Safety Report 11840070 (Version 1)
Quarter: 2015Q4

REPORT INFORMATION
  Report Type: Spontaneous
  Country: US (occurrence: US)
  Receive Date: 20151216
  Receipt Date: 20151216
  Transmission Date: 20160305
  Serious: No
  Sender: FDA-Public Use
  Company Number: US-CELGENEUS-USA-2015118048

PATIENT
  Age: 24 Year
  Sex: Male
  Weight: 63.56 kg

DRUGS (1)
  1. OTEZLA [Suspect]
     Active Substance: APREMILAST
     Indication: PSORIASIS
     Dosage: 60 MILLIGRAM
     Route: 048
     Dates: start: 20151020

REACTIONS (2)
  - Toothache [Unknown]
  - Gingival bleeding [Unknown]

NARRATIVE: CASE EVENT DATE: 20151020
